FAERS Safety Report 4394393-1 (Version None)
Quarter: 2004Q3

REPORT INFORMATION
  Report Type: 
  Country: None (occurrence: None)
  Receive Date: 20040709
  Receipt Date: 20040709
  Transmission Date: 20050211
  Serious: No
  Sender: FDA-Public Use
  Company Number: None

PATIENT
  Sex: Male
  Weight: 96.6162 kg

DRUGS (15)
  1. FUZEON [Suspect]
     Indication: DRUG ERUPTION
     Dosage: 90 MG BID SUBCUTANEOUS
     Route: 058
     Dates: start: 20030815, end: 20040703
  2. ATORVASTATIN CALCIUM [Concomitant]
  3. BENAZEPRIL HCL [Concomitant]
  4. ASPIRIN [Concomitant]
  5. GEMFIBROZIL [Concomitant]
  6. METFORMIN HCL [Concomitant]
  7. ROFECOXIB [Concomitant]
  8. ATAZANAVIR [Concomitant]
  9. RITONAVIR [Concomitant]
  10. TENOFOVIR [Concomitant]
  11. EMTRICITABINE [Concomitant]
  12. ENFUVIRTIDE-FUZEON [Concomitant]
  13. TESTOSTERONE [Concomitant]
  14. INSULIN [Concomitant]
  15. INSULIN, ULTRALENTE [Concomitant]

REACTIONS (4)
  - INJECTION SITE RASH [None]
  - RASH ERYTHEMATOUS [None]
  - RASH MACULAR [None]
  - RASH PRURITIC [None]
